FAERS Safety Report 17023538 (Version 2)
Quarter: 2019Q4

REPORT INFORMATION
  Report Type: Spontaneous
  Country: US (occurrence: US)
  Receive Date: 20191112
  Receipt Date: 20191206
  Transmission Date: 20200122
  Serious: Yes (Other)
  Sender: FDA-Public Use
  Company Number: US-AUROBINDO-AUR-APL-2019-070737

PATIENT
  Age: 39 Year
  Sex: Male

DRUGS (2)
  1. BUPIVACAINE HYDROCHLORIDE INJECTION USP 0.5% (5 MG/ML) [Suspect]
     Active Substance: BUPIVACAINE HYDROCHLORIDE
     Indication: NERVE BLOCK
     Dosage: 3 MILLILITER
     Route: 065
  2. EPINEPHRINE. [Suspect]
     Active Substance: EPINEPHRINE
     Indication: NERVE BLOCK
     Dosage: UNK, 1:200,000
     Route: 065

REACTIONS (4)
  - Incorrect route of product administration [Recovered/Resolved]
  - Blood pressure increased [Recovered/Resolved]
  - Local anaesthetic systemic toxicity [Recovered/Resolved]
  - Heart rate increased [Recovered/Resolved]
